FAERS Safety Report 22013666 (Version 1)
Quarter: 2023Q1

REPORT INFORMATION
  Report Type: Spontaneous
  Country: US (occurrence: US)
  Receive Date: 20230220
  Receipt Date: 20230220
  Transmission Date: 20230418
  Serious: Yes (Other)
  Sender: FDA-Public Use
  Company Number: US-drreddys-LIT/USA/23/0161222

PATIENT
  Age: 62 Year
  Sex: Male

DRUGS (6)
  1. CETIRIZINE [Suspect]
     Active Substance: CETIRIZINE HYDROCHLORIDE
     Indication: Anaphylaxis prophylaxis
     Dosage: NIGHT PRIOR AND MORNING OF THE INFUSION
  2. MONTELUKAST [Suspect]
     Active Substance: MONTELUKAST SODIUM
     Indication: Anaphylaxis prophylaxis
     Dosage: NIGHT PRIOR AND MORNING OF THE INFUSION
  3. PREDNISONE [Suspect]
     Active Substance: PREDNISONE
     Indication: Anaphylaxis prophylaxis
     Dosage: NIGHT PRIOR AND MORNING OF THE INFUSION
  4. ASPIRIN [Suspect]
     Active Substance: ASPIRIN
     Indication: Anaphylaxis prophylaxis
     Dosage: NIGHT PRIOR AND MORNING OF THE INFUSION
  5. DIPHENHYDRAMINE HYDROCHLORIDE [Concomitant]
     Active Substance: DIPHENHYDRAMINE HYDROCHLORIDE
     Indication: Premedication
  6. SOLU-MEDROL [Concomitant]
     Active Substance: METHYLPREDNISOLONE SODIUM SUCCINATE
     Indication: Premedication

REACTIONS (1)
  - Drug ineffective for unapproved indication [Unknown]
